FAERS Safety Report 4439777-8 (Version None)
Quarter: 2004Q3

REPORT INFORMATION
  Report Type: 
  Country: None (occurrence: None)
  Receive Date: 20040831
  Receipt Date: 20040819
  Transmission Date: 20050211
  Serious: No
  Sender: FDA-Public Use
  Company Number: 2004AP04365

PATIENT
  Age: 78 Year
  Sex: Female

DRUGS (5)
  1. ATENOLOL [Suspect]
     Dosage: 25 MG DAILY PO
     Route: 048
  2. TROMBYL [Suspect]
     Dosage: 100 MG DAILY PO
     Route: 048
  3. BREXICAM [Suspect]
  4. MACRODANTIN [Suspect]
     Indication: URINARY TRACT DISORDER
     Dosage: 100 MG DAILY PO
     Route: 048
     Dates: start: 19961001, end: 19970828
  5. CARDIZEM [Suspect]
     Dosage: 180 MG DAILY PO
     Route: 048

REACTIONS (1)
  - PULMONARY FIBROSIS [None]
